FAERS Safety Report 25851501 (Version 1)
Quarter: 2025Q3

REPORT INFORMATION
  Report Type: Report from Study
  Country: CA (occurrence: CA)
  Receive Date: 20250926
  Receipt Date: 20250926
  Transmission Date: 20251020
  Serious: Yes (Other)
  Sender: CELLTRION
  Company Number: CA-CELLTRION INC.-2025CA033880

PATIENT

DRUGS (1)
  1. OMALIZUMAB [Suspect]
     Active Substance: OMALIZUMAB
     Indication: Chronic spontaneous urticaria
     Route: 058

REACTIONS (26)
  - Abdominal pain upper [Recovering/Resolving]
  - Anaphylactic shock [Recovering/Resolving]
  - Cough [Recovering/Resolving]
  - Deafness unilateral [Recovering/Resolving]
  - Diarrhoea [Recovering/Resolving]
  - Discomfort [Recovering/Resolving]
  - Dizziness [Recovering/Resolving]
  - Ear haemorrhage [Recovering/Resolving]
  - Ear pruritus [Recovering/Resolving]
  - Epistaxis [Recovering/Resolving]
  - Erythema [Recovering/Resolving]
  - Eye pruritus [Recovering/Resolving]
  - Hot flush [Recovering/Resolving]
  - Paraesthesia [Recovering/Resolving]
  - Pharyngeal disorder [Recovering/Resolving]
  - Pruritus [Recovering/Resolving]
  - Renal pain [Recovering/Resolving]
  - Residual symptom [Recovering/Resolving]
  - Sensitive skin [Recovering/Resolving]
  - Sinus disorder [Recovering/Resolving]
  - Urinary tract infection [Recovering/Resolving]
  - Vomiting [Recovering/Resolving]
  - Urticaria [Recovering/Resolving]
  - Anaphylactic reaction [Recovering/Resolving]
  - Influenza [Recovering/Resolving]
  - Illness [Recovering/Resolving]
